FAERS Safety Report 7412503-6 (Version None)
Quarter: 2011Q2

REPORT INFORMATION
  Report Type: 
  Country: None (occurrence: None)
  Receive Date: 20110413
  Receipt Date: 20110401
  Transmission Date: 20111010
  Serious: Yes (Other)
  Sender: FDA-Public Use
  Company Number: PHHY2011BR27849

PATIENT
  Sex: Male
  Weight: 80 kg

DRUGS (2)
  1. DIOVAN HCT [Suspect]
     Indication: HYPERTENSION
     Dosage: 1 DF,320/12,5MG 1 TABLET DAILY
     Route: 048
  2. MANIDIPINE HYDROCHLORIDE [Concomitant]
     Indication: HYPERTENSION
     Dosage: 1 DF IN THE MORNING
     Route: 048

REACTIONS (3)
  - EXPIRED DRUG ADMINISTERED [None]
  - AMNESIA [None]
  - DIABETES MELLITUS [None]
